FAERS Safety Report 11142020 (Version 4)
Quarter: 2015Q3

REPORT INFORMATION
  Report Type: Spontaneous
  Country: US (occurrence: US)
  Receive Date: 20150527
  Receipt Date: 20150904
  Transmission Date: 20151125
  Serious: Yes (Hospitalization)
  Sender: FDA-Public Use
  Company Number: US-PFIZER INC-2015175169

PATIENT
  Age: 60 Year
  Sex: Female
  Weight: 54 kg

DRUGS (4)
  1. XELJANZ [Suspect]
     Active Substance: TOFACITINIB CITRATE
     Indication: JUVENILE IDIOPATHIC ARTHRITIS
     Dosage: 5 MG, 2X/DAY
     Route: 048
     Dates: start: 20150330, end: 201505
  2. PREDNISONE. [Concomitant]
     Active Substance: PREDNISONE
     Dosage: 5MG TABLET ONE A DAY
     Route: 048
     Dates: start: 1970
  3. XELJANZ [Suspect]
     Active Substance: TOFACITINIB CITRATE
     Indication: RHEUMATOID ARTHRITIS
     Dosage: 5 MG, 2X/DAY
     Route: 048
     Dates: start: 201505, end: 20150525
  4. ALEVE [Suspect]
     Active Substance: NAPROXEN SODIUM
     Dosage: UNK

REACTIONS (6)
  - Gastrooesophageal reflux disease [Unknown]
  - Fluid retention [Recovered/Resolved]
  - Weight increased [Recovered/Resolved]
  - Generalised oedema [Not Recovered/Not Resolved]
  - Fall [Unknown]
  - Dysgeusia [Unknown]

NARRATIVE: CASE EVENT DATE: 20150419
